FAERS Safety Report 5787793-6 (Version None)
Quarter: 2008Q2

REPORT INFORMATION
  Report Type: 
  Country: None (occurrence: None)
  Receive Date: 20080625
  Receipt Date: 20080617
  Transmission Date: 20081010
  Serious: Yes (Other)
  Sender: FDA-Public Use
  Company Number: PHEH2008US04105

PATIENT
  Sex: Male
  Weight: 168.71 kg

DRUGS (9)
  1. TEKTURNA [Suspect]
     Indication: HYPERTENSION
     Dosage: 300 MG, QD
     Route: 048
     Dates: start: 20080328
  2. TEKTURNA [Suspect]
     Dosage: 150 MG, QD
  3. METFORMIN HCL [Concomitant]
     Indication: TYPE 2 DIABETES MELLITUS
     Dosage: 1000 MG, BID
  4. ATACAND [Concomitant]
     Indication: HYPERTENSION
     Dosage: 32 MG, UNK
  5. LASIX [Concomitant]
     Indication: VENOUS STASIS
     Dosage: 40 MG, BID
  6. COREG [Concomitant]
  7. AVANDARYL [Concomitant]
  8. VYTORIN [Concomitant]
  9. BYETTA [Concomitant]

REACTIONS (9)
  - BLOOD ALBUMIN INCREASED [None]
  - BLOOD CALCIUM INCREASED [None]
  - BLOOD CREATININE INCREASED [None]
  - BLOOD POTASSIUM INCREASED [None]
  - BLOOD UREA INCREASED [None]
  - ORTHOSTATIC HYPOTENSION [None]
  - PROTEIN TOTAL INCREASED [None]
  - RENAL FAILURE ACUTE [None]
  - WEIGHT DECREASED [None]
